FAERS Safety Report 18438797 (Version 2)
Quarter: 2021Q1

REPORT INFORMATION
  Report Type: Report from Study
  Country: None (occurrence: AU)
  Receive Date: 20201029
  Receipt Date: 20210115
  Transmission Date: 20210419
  Serious: Yes (Hospitalization, Other)
  Sender: FDA-Public Use
  Company Number: AU-ABBVIE-20K-008-3626050-00

PATIENT
  Age: 65 Year
  Sex: Male

DRUGS (1)
  1. HUMIRA [Suspect]
     Active Substance: ADALIMUMAB
     Indication: PSORIATIC ARTHROPATHY
     Route: 058
     Dates: start: 20170727

REACTIONS (11)
  - Food poisoning [Recovered/Resolved]
  - Gallbladder disorder [Recovered/Resolved]
  - Procedural complication [Recovering/Resolving]
  - Prostatic operation [Recovering/Resolving]
  - Malaise [Not Recovered/Not Resolved]
  - Asthenia [Not Recovered/Not Resolved]
  - Cholelithiasis [Recovered/Resolved]
  - Weight increased [Not Recovered/Not Resolved]
  - Gastroenteritis Escherichia coli [Recovering/Resolving]
  - Joint swelling [Not Recovered/Not Resolved]
  - Gastrointestinal injury [Recovering/Resolving]

NARRATIVE: CASE EVENT DATE: 202007
